FAERS Safety Report 9861664 (Version 1)
Quarter: 2014Q1

REPORT INFORMATION
  Report Type: Spontaneous
  Country: CN (occurrence: CN)
  Receive Date: 20140203
  Receipt Date: 20140203
  Transmission Date: 20141002
  Serious: Yes (Hospitalization)
  Sender: FDA-Public Use
  Company Number: CN-ASTRAZENECA-2013SE84592

PATIENT
  Age: 2 Year
  Sex: Male

DRUGS (4)
  1. PULMICORT REPULES [Suspect]
     Indication: WHEEZING
     Route: 055
  2. BRICANYL [Suspect]
     Indication: WHEEZING
     Route: 055
  3. ATROVENT [Suspect]
     Indication: WHEEZING
     Route: 055
  4. ANTIBIOTIC [Suspect]
     Indication: WHEEZING
     Route: 041
     Dates: start: 20131115

REACTIONS (2)
  - Medication error [Unknown]
  - Intentional drug misuse [Unknown]
